FAERS Safety Report 12290915 (Version 4)
Quarter: 2016Q2

REPORT INFORMATION
  Report Type: Spontaneous
  Country: JP (occurrence: JP)
  Receive Date: 20160421
  Receipt Date: 20160622
  Transmission Date: 20160815
  Serious: Yes (Life-Threatening, Hospitalization, Other)
  Sender: FDA-Public Use
  Company Number: JP-ELI_LILLY_AND_COMPANY-JP201604006842

PATIENT
  Age: 79 Year
  Sex: Female
  Weight: 55 kg

DRUGS (8)
  1. REMERON [Suspect]
     Active Substance: MIRTAZAPINE
     Indication: DEPRESSION
     Dosage: 15 MG, QD
     Route: 048
     Dates: start: 20151224
  2. CELECOX [Concomitant]
     Active Substance: CELECOXIB
     Dosage: 200 MG, BID
     Route: 048
     Dates: start: 20150424, end: 20151218
  3. VIVIANT [Concomitant]
     Active Substance: BAZEDOXIFENE
     Indication: OSTEOPOROSIS
     Dosage: 20 MG, QD
     Route: 048
     Dates: start: 20141121
  4. CYMBALTA [Suspect]
     Active Substance: DULOXETINE HYDROCHLORIDE
     Indication: DEPRESSION
     Dosage: 30 MG, UNK
     Route: 048
     Dates: start: 20151211, end: 20151217
  5. LUNESTA [Suspect]
     Active Substance: ESZOPICLONE
     Indication: INSOMNIA
     Dosage: 1 MG, QD
     Route: 048
     Dates: start: 20150410, end: 20151218
  6. CYMBALTA [Suspect]
     Active Substance: DULOXETINE HYDROCHLORIDE
     Indication: BACK PAIN
     Dosage: 20 MG, UNK
     Route: 048
     Dates: start: 20151204, end: 20151210
  7. EDIROL [Concomitant]
     Active Substance: ELDECALCITOL
     Indication: OSTEOPOROSIS
     Dosage: 0.5 UG, QD
     Route: 048
     Dates: start: 20141121
  8. REBAMIPIDE [Concomitant]
     Active Substance: REBAMIPIDE
     Dosage: 200 MG, BID
     Dates: start: 20150424, end: 20151218

REACTIONS (4)
  - Shock [Recovered/Resolved]
  - Depressive symptom [Not Recovered/Not Resolved]
  - Hypomania [Not Recovered/Not Resolved]
  - Suicide attempt [Recovering/Resolving]

NARRATIVE: CASE EVENT DATE: 20151217
